FAERS Safety Report 24411035 (Version 2)
Quarter: 2024Q4

REPORT INFORMATION
  Report Type: Spontaneous
  Country: TR (occurrence: TR)
  Receive Date: 20241008
  Receipt Date: 20241010
  Transmission Date: 20250114
  Serious: Yes (Life-Threatening, Hospitalization, Other)
  Sender: PFIZER
  Company Number: TR-MLMSERVICE-20240927-PI210957-00147-1

PATIENT
  Age: 71 Year
  Sex: Female

DRUGS (2)
  1. FILGRASTIM [Suspect]
     Active Substance: FILGRASTIM
     Indication: Metastatic renal cell carcinoma
     Dosage: (30 MILLION UNITS) OF FILGRASTIM 24 H LATER AFTER THE LAST DOSAGE OF VINFLUNIN)
  2. VINFLUNINE [Suspect]
     Active Substance: VINFLUNINE
     Indication: Metastatic renal cell carcinoma
     Dosage: 250 MG OF VINFLUNIN A WEEK AGO

REACTIONS (1)
  - Posterior reversible encephalopathy syndrome [Recovered/Resolved]
